FAERS Safety Report 9775296 (Version 1)
Quarter: 2013Q4

REPORT INFORMATION
  Report Type: Spontaneous
  Country: DE (occurrence: DE)
  Receive Date: 20131220
  Receipt Date: 20131220
  Transmission Date: 20140711
  Serious: Yes (Hospitalization, Other)
  Sender: FDA-Public Use
  Company Number: DE-TEVA-451735USA

PATIENT
  Age: 63 Year
  Sex: Female

DRUGS (2)
  1. BENDAMUSTINE [Suspect]
     Indication: CHRONIC LYMPHOCYTIC LEUKAEMIA
     Route: 042
  2. LEVOTHYROXINE SODIUM FOR INJECTION,200 MCG/6 ML VIAL + 500 MCG/6 ML VI [Suspect]

REACTIONS (4)
  - Pancytopenia [Not Recovered/Not Resolved]
  - Rash pruritic [Recovering/Resolving]
  - Rash erythematous [Recovering/Resolving]
  - Exfoliative rash [Recovering/Resolving]
